FAERS Safety Report 5822436-4 (Version None)
Quarter: 2008Q3

REPORT INFORMATION
  Report Type: 
  Country: None (occurrence: None)
  Receive Date: 20080725
  Receipt Date: 20080307
  Transmission Date: 20090109
  Serious: No
  Sender: FDA-Public Use
  Company Number: US-AMGEN-KDL269268

PATIENT
  Sex: Male
  Weight: 56.8 kg

DRUGS (15)
  1. PROCRIT [Suspect]
     Indication: RENAL FAILURE CHRONIC
     Dates: start: 20070401
  2. LASIX [Concomitant]
  3. POTASSIUM CHLORIDE [Concomitant]
  4. PREDNISONE TAB [Concomitant]
  5. ALBUTEROL SULFATE [Concomitant]
     Route: 055
  6. IPRATROPIUM BROMIDE [Concomitant]
     Route: 055
  7. ASPIRIN [Concomitant]
  8. FERROUS SULFATE TAB [Concomitant]
  9. MEGESTROL ACETATE [Concomitant]
  10. SUCRALFATE [Concomitant]
  11. DILTIAZEM HCL [Concomitant]
  12. HYDRALAZINE HYDROCHLORIDE [Concomitant]
  13. MUCINEX [Concomitant]
  14. PROTONIX [Concomitant]
  15. AVANDIA [Concomitant]
     Dates: end: 20071201

REACTIONS (2)
  - INJECTION SITE IRRITATION [None]
  - PAIN [None]
